FAERS Safety Report 16782428 (Version 6)
Quarter: 2022Q1

REPORT INFORMATION
  Report Type: Spontaneous
  Country: US (occurrence: None)
  Receive Date: 20190906
  Receipt Date: 20220311
  Transmission Date: 20220423
  Serious: Yes (Hospitalization, Other)
  Sender: FDA-Public Use
  Company Number: 2019SF26260

PATIENT
  Age: 15610 Day
  Sex: Female
  Weight: 149.2 kg

DRUGS (99)
  1. FARXIGA [Suspect]
     Active Substance: DAPAGLIFLOZIN PROPANEDIOL
     Indication: Type 2 diabetes mellitus
     Route: 048
     Dates: start: 20171120
  2. FARXIGA [Suspect]
     Active Substance: DAPAGLIFLOZIN PROPANEDIOL
     Indication: Weight decreased
     Route: 048
     Dates: start: 20171120
  3. FARXIGA [Suspect]
     Active Substance: DAPAGLIFLOZIN PROPANEDIOL
     Indication: Blood pressure decreased
     Route: 048
     Dates: start: 20171120
  4. FARXIGA [Suspect]
     Active Substance: DAPAGLIFLOZIN PROPANEDIOL
     Indication: Type 2 diabetes mellitus
     Route: 048
     Dates: start: 20161121
  5. FARXIGA [Suspect]
     Active Substance: DAPAGLIFLOZIN PROPANEDIOL
     Indication: Weight decreased
     Route: 048
     Dates: start: 20161121
  6. FARXIGA [Suspect]
     Active Substance: DAPAGLIFLOZIN PROPANEDIOL
     Indication: Blood pressure decreased
     Route: 048
     Dates: start: 20161121
  7. FARXIGA [Suspect]
     Active Substance: DAPAGLIFLOZIN PROPANEDIOL
     Indication: Type 2 diabetes mellitus
     Route: 048
     Dates: start: 20181219
  8. FARXIGA [Suspect]
     Active Substance: DAPAGLIFLOZIN PROPANEDIOL
     Indication: Weight decreased
     Route: 048
     Dates: start: 20181219
  9. FARXIGA [Suspect]
     Active Substance: DAPAGLIFLOZIN PROPANEDIOL
     Indication: Blood pressure decreased
     Route: 048
     Dates: start: 20181219
  10. XIGDUO XR [Suspect]
     Active Substance: DAPAGLIFLOZIN PROPANEDIOL\METFORMIN HYDROCHLORIDE
     Route: 048
  11. LANTUS [Concomitant]
     Active Substance: INSULIN GLARGINE
     Dates: start: 20190905
  12. ROPINIROLE [Concomitant]
     Active Substance: ROPINIROLE
     Dates: start: 20190911
  13. LISINOPRIL [Concomitant]
     Active Substance: LISINOPRIL
  14. HYDROCHLOROTHIAZIDE [Concomitant]
     Active Substance: HYDROCHLOROTHIAZIDE
  15. OXYCODONE [Concomitant]
     Active Substance: OXYCODONE
     Dates: start: 20190808
  16. NOVOLOG [Concomitant]
     Active Substance: INSULIN ASPART
     Dates: start: 20190716
  17. NOVOLOG [Concomitant]
     Active Substance: INSULIN ASPART
     Dates: start: 20190716
  18. VITAMIN D3 [Concomitant]
     Active Substance: CHOLECALCIFEROL
  19. GABAPENTIN [Concomitant]
     Active Substance: GABAPENTIN
     Dates: start: 20151122
  20. ACETAMINOPHEN\HYDROCODONE [Concomitant]
     Active Substance: ACETAMINOPHEN\HYDROCODONE
     Dates: start: 20160621
  21. KLONOPIN [Concomitant]
     Active Substance: CLONAZEPAM
  22. PERCOCET [Concomitant]
     Active Substance: ACETAMINOPHEN\OXYCODONE HYDROCHLORIDE
  23. AUGMENTIN [Concomitant]
     Active Substance: AMOXICILLIN\CLAVULANATE POTASSIUM
     Dates: start: 20170213
  24. AUGMENTIN [Concomitant]
     Active Substance: AMOXICILLIN\CLAVULANATE POTASSIUM
     Dates: start: 20190628
  25. DIFLUCAN [Concomitant]
     Active Substance: FLUCONAZOLE
  26. DOXYCYCLINE HYCLATE [Concomitant]
     Active Substance: DOXYCYCLINE HYCLATE
  27. LYRICA [Concomitant]
     Active Substance: PREGABALIN
  28. PHENTERMINE [Concomitant]
     Active Substance: PHENTERMINE
  29. HUMULIN NOS [Concomitant]
     Active Substance: INSULIN HUMAN
     Dates: start: 20151221
  30. AMBIEN [Concomitant]
     Active Substance: ZOLPIDEM TARTRATE
     Dates: start: 20160428
  31. RELION [Concomitant]
  32. ESTRADIOL [Concomitant]
     Active Substance: ESTRADIOL
     Dates: start: 20160309
  33. DOXEPIN [Concomitant]
     Active Substance: DOXEPIN
  34. COREG [Concomitant]
     Active Substance: CARVEDILOL
  35. EMLA [Concomitant]
     Active Substance: LIDOCAINE\PRILOCAINE
  36. FLEXERIL [Concomitant]
     Active Substance: CYCLOBENZAPRINE HYDROCHLORIDE
     Dates: start: 20190808
  37. TRULICITY [Concomitant]
     Active Substance: DULAGLUTIDE
     Dates: start: 20191028
  38. PRINZIDE [Concomitant]
     Active Substance: HYDROCHLOROTHIAZIDE\LISINOPRIL
  39. OSCAL [Concomitant]
     Active Substance: CALCIUM CARBONATE
  40. VITAMIN D2 [Concomitant]
     Active Substance: ERGOCALCIFEROL
  41. SULFAMETHOXAZOLE\TRIMETHOPRIM [Concomitant]
     Active Substance: SULFAMETHOXAZOLE\TRIMETHOPRIM
  42. ADDERALL [Concomitant]
     Active Substance: AMPHETAMINE ASPARTATE\AMPHETAMINE SULFATE\DEXTROAMPHETAMINE SACCHARATE\DEXTROAMPHETAMINE SULFATE
     Dates: start: 20190808
  43. GLUCOPHAGE [Concomitant]
     Active Substance: METFORMIN HYDROCHLORIDE
     Dates: start: 20160321
  44. HUMALOG [Concomitant]
     Active Substance: INSULIN LISPRO
  45. LEVEMIR [Concomitant]
     Active Substance: INSULIN DETEMIR
  46. LIDOCAINE [Concomitant]
     Active Substance: LIDOCAINE
  47. SERTRALINE [Concomitant]
     Active Substance: SERTRALINE HYDROCHLORIDE
  48. DEXTROAMPHETAMINE [Concomitant]
     Active Substance: DEXTROAMPHETAMINE
  49. APIS MELLIFICA/FUMARIC ACID/MYOSOTIS ARVENSIS/MAGNESIUM PHOSPHATE/OXAL [Concomitant]
  50. BETAMETHASONE/KETOROLAC [Concomitant]
  51. NARCAN [Concomitant]
     Active Substance: NALOXONE HYDROCHLORIDE
  52. DEMEROL [Concomitant]
     Active Substance: MEPERIDINE HYDROCHLORIDE
  53. TRANDATE [Concomitant]
     Active Substance: LABETALOL HYDROCHLORIDE
  54. VASOTEC [Concomitant]
     Active Substance: ENALAPRIL MALEATE
  55. BUPIVACAINE [Concomitant]
     Active Substance: BUPIVACAINE
  56. FENTANYL [Concomitant]
     Active Substance: FENTANYL
  57. MORPHINE [Concomitant]
     Active Substance: MORPHINE
  58. PROPOFOL [Concomitant]
     Active Substance: PROPOFOL
  59. HYDROMORPHONE [Concomitant]
     Active Substance: HYDROMORPHONE
  60. MIDAZOLAM [Concomitant]
     Active Substance: MIDAZOLAM
  61. SUCCINYLCHOLINE [Concomitant]
     Active Substance: SUCCINYLCHOLINE
  62. CALCIUM CARBONATE [Concomitant]
     Active Substance: CALCIUM CARBONATE
  63. DRONABINOL [Concomitant]
     Active Substance: DRONABINOL
  64. BISACODYL [Concomitant]
     Active Substance: BISACODYL
  65. HEPARIN/PLASMA PROTEIN FRACTION (HUMAN)/FACTOR IX/FACTOR X (STUART PRO [Concomitant]
  66. ZITHROMAX [Concomitant]
     Active Substance: AZITHROMYCIN DIHYDRATE
  67. ALDACTONE [Concomitant]
     Active Substance: SPIRONOLACTONE
  68. ESOMEPRAZOLE [Concomitant]
     Active Substance: ESOMEPRAZOLE
  69. CLARITIN [Concomitant]
     Active Substance: LORATADINE
  70. CEFTRIAXONE [Concomitant]
     Active Substance: CEFTRIAXONE
  71. SINEMET [Concomitant]
     Active Substance: CARBIDOPA\LEVODOPA
  72. NIFEDIPINE [Concomitant]
     Active Substance: NIFEDIPINE
  73. KETALAR [Concomitant]
     Active Substance: KETAMINE HYDROCHLORIDE
  74. ADRENAL CORTICAL EXTRACT/PANCREAS EXTRACT/PHENOBARBITAL/ACETANILIDE/CR [Concomitant]
  75. NALBUPHINE [Concomitant]
     Active Substance: NALBUPHINE
  76. OXYTOCIN [Concomitant]
     Active Substance: OXYTOCIN
  77. COLACE [Concomitant]
     Active Substance: DOCUSATE SODIUM
  78. BENADRYL [Concomitant]
     Active Substance: DIPHENHYDRAMINE HYDROCHLORIDE
  79. PROMETHAZINE HYDROCHLORIDE/PETHIDINE HYDROCHLORIDE [Concomitant]
  80. PHENERGAN [Concomitant]
     Active Substance: PROMETHAZINE HYDROCHLORIDE
  81. ROBAXIN [Concomitant]
     Active Substance: METHOCARBAMOL
  82. SILVADENE [Concomitant]
     Active Substance: SILVER SULFADIAZINE
  83. ZOFRAN [Concomitant]
     Active Substance: ONDANSETRON HYDROCHLORIDE
  84. ACYCLOVIR [Concomitant]
     Active Substance: ACYCLOVIR
  85. GLYBURIDE [Concomitant]
     Active Substance: GLYBURIDE
  86. KLOR-CON [Concomitant]
     Active Substance: POTASSIUM CHLORIDE
  87. VYVANSE [Concomitant]
     Active Substance: LISDEXAMFETAMINE DIMESYLATE
     Dates: start: 20151202
  88. ATORVASTATIN [Concomitant]
     Active Substance: ATORVASTATIN
     Dates: start: 20190723
  89. MOTRIN [Concomitant]
     Active Substance: IBUPROFEN
     Route: 065
     Dates: start: 20190613
  90. LACTIC ACID [Concomitant]
     Active Substance: LACTIC ACID
     Route: 065
     Dates: start: 20190613
  91. NEXIUM [Concomitant]
     Active Substance: ESOMEPRAZOLE MAGNESIUM
  92. ENOXAPARIN [Concomitant]
     Active Substance: ENOXAPARIN
  93. CYCLOBENZAPRINE [Concomitant]
     Active Substance: CYCLOBENZAPRINE
  94. GLUCAGON [Concomitant]
     Active Substance: GLUCAGON
  95. PROMETHAZINE [Concomitant]
     Active Substance: PROMETHAZINE HYDROCHLORIDE
  96. SODIUM CHLORIDE [Concomitant]
     Active Substance: SODIUM CHLORIDE
  97. INSULIN NOS [Concomitant]
     Active Substance: INSULIN NOS
  98. AMPHETAMINE [Concomitant]
     Active Substance: AMPHETAMINE
  99. OXYCODONE [Concomitant]
     Active Substance: OXYCODONE

REACTIONS (12)
  - Fournier^s gangrene [Unknown]
  - Sepsis [Unknown]
  - Perineal cellulitis [Unknown]
  - Necrotising fasciitis [Unknown]
  - Perineal abscess [Unknown]
  - Cellulitis [Unknown]
  - Gangrene [Unknown]
  - Cellulitis gangrenous [Unknown]
  - Vulval cellulitis [Unknown]
  - Vulval abscess [Unknown]
  - Urinary tract infection [Unknown]
  - Vulvitis [Unknown]

NARRATIVE: CASE EVENT DATE: 20190614
